FAERS Safety Report 6508286-4 (Version None)
Quarter: 2009Q4

REPORT INFORMATION
  Report Type: 
  Country: None (occurrence: None)
  Receive Date: 20091221
  Receipt Date: 20090623
  Transmission Date: 20100525
  Serious: No
  Sender: FDA-Public Use
  Company Number: US-ASTRAZENECA-2008UW18065

PATIENT
  Age: 81 Year
  Sex: Female
  Weight: 54.4 kg

DRUGS (10)
  1. CRESTOR [Suspect]
     Indication: BLOOD CHOLESTEROL INCREASED
     Route: 048
     Dates: start: 20080101, end: 20090101
  2. COZAAR [Concomitant]
  3. SPIRONOLACTONE [Concomitant]
  4. SOTALOL HCL [Concomitant]
     Route: 048
  5. CITALOPRAM HYDROBROMIDE [Concomitant]
  6. LECITHIN [Concomitant]
  7. CENTRUM SILVER [Concomitant]
  8. VITAMIN D [Concomitant]
  9. PRAVASTATIN [Concomitant]
  10. VYTORIN [Concomitant]

REACTIONS (3)
  - FATIGUE [None]
  - MOBILITY DECREASED [None]
  - MYALGIA [None]
